FAERS Safety Report 17544632 (Version 1)
Quarter: 2020Q1

REPORT INFORMATION
  Report Type: Spontaneous
  Country: US (occurrence: US)
  Receive Date: 20200316
  Receipt Date: 20200316
  Transmission Date: 20200409
  Serious: No
  Sender: FDA-Public Use
  Company Number: US-PFIZER INC-2020109576

PATIENT
  Age: 83 Year
  Sex: Female
  Weight: 70.76 kg

DRUGS (1)
  1. MEDROXYPROGESTERONE ACETATE. [Suspect]
     Active Substance: MEDROXYPROGESTERONE ACETATE
     Dosage: UNK

REACTIONS (4)
  - Throat tightness [Unknown]
  - Abdominal discomfort [Unknown]
  - Nausea [Unknown]
  - Dyspnoea [Unknown]
